FAERS Safety Report 16375690 (Version 7)
Quarter: 2021Q3

REPORT INFORMATION
  Report Type: Spontaneous
  Country: US (occurrence: US)
  Receive Date: 20190531
  Receipt Date: 20210701
  Transmission Date: 20211014
  Serious: Yes (Hospitalization, Other)
  Sender: FDA-Public Use
  Company Number: US-GILEAD-2019-0410809

PATIENT
  Age: 35 Year
  Sex: Male
  Weight: 72.6 kg

DRUGS (24)
  1. PAXIL [PIROXICAM] [Concomitant]
     Active Substance: PIROXICAM
  2. KLONOPIN [Concomitant]
     Active Substance: CLONAZEPAM
  3. TRAZODONE [Concomitant]
     Active Substance: TRAZODONE HYDROCHLORIDE
  4. TRIUMEQ [Concomitant]
     Active Substance: ABACAVIR SULFATE\DOLUTEGRAVIR SODIUM\LAMIVUDINE
  5. TRICOR [ADENOSINE] [Concomitant]
     Active Substance: ADENOSINE
  6. TRUVADA [Suspect]
     Active Substance: EMTRICITABINE\TENOFOVIR DISOPROXIL FUMARATE
     Indication: HIV INFECTION
     Dosage: 1 DF 200MG?300MG QD
     Route: 048
     Dates: start: 20100924, end: 201403
  7. RETROVIR [Concomitant]
     Active Substance: ZIDOVUDINE
  8. PRAVASTATIN. [Concomitant]
     Active Substance: PRAVASTATIN
  9. ANAFRANIL [Concomitant]
     Active Substance: CLOMIPRAMINE HYDROCHLORIDE
  10. EPZICOM [Concomitant]
     Active Substance: ABACAVIR SULFATE\LAMIVUDINE
  11. BENADRYL [Concomitant]
     Active Substance: DIPHENHYDRAMINE HYDROCHLORIDE
  12. SEROQUEL [Concomitant]
     Active Substance: QUETIAPINE FUMARATE
  13. ISENTRESS [Concomitant]
     Active Substance: RALTEGRAVIR POTASSIUM
  14. DIAZEPAM. [Concomitant]
     Active Substance: DIAZEPAM
  15. NEXIUM I.V. [Concomitant]
     Active Substance: ESOMEPRAZOLE SODIUM
  16. HYDROCODONE BITARTRATE AND ACETAMINOPHEN [Concomitant]
     Active Substance: ACETAMINOPHEN\HYDROCODONE BITARTRATE
  17. PANTOPRAZOLE [Concomitant]
     Active Substance: PANTOPRAZOLE
  18. K?DUR [Concomitant]
     Active Substance: POTASSIUM CHLORIDE
  19. PROZAC [Concomitant]
     Active Substance: FLUOXETINE HYDROCHLORIDE
  20. METFORMIN [Concomitant]
     Active Substance: METFORMIN HYDROCHLORIDE
  21. ABILIFY [Concomitant]
     Active Substance: ARIPIPRAZOLE
  22. DOXEPIN [Concomitant]
     Active Substance: DOXEPIN
  23. ZANTAC [Concomitant]
     Active Substance: RANITIDINE HYDROCHLORIDE
  24. IBUPROFEN. [Concomitant]
     Active Substance: IBUPROFEN

REACTIONS (19)
  - Spinal compression fracture [Recovered/Resolved]
  - Somnolence [Unknown]
  - Bone density decreased [Unknown]
  - Osteonecrosis [Unknown]
  - Fracture [Unknown]
  - Renal failure [Not Recovered/Not Resolved]
  - Tooth disorder [Not Recovered/Not Resolved]
  - Pain [Not Recovered/Not Resolved]
  - Dysstasia [Unknown]
  - Osteoporosis [Not Recovered/Not Resolved]
  - Bone loss [Unknown]
  - Emotional distress [Not Recovered/Not Resolved]
  - Economic problem [Not Recovered/Not Resolved]
  - Chronic kidney disease [Not Recovered/Not Resolved]
  - Osteopenia [Unknown]
  - Acute kidney injury [Recovered/Resolved]
  - Anxiety [Not Recovered/Not Resolved]
  - Anhedonia [Not Recovered/Not Resolved]
  - Pain in extremity [Unknown]

NARRATIVE: CASE EVENT DATE: 201205
